FAERS Safety Report 7628414-7 (Version None)
Quarter: 2011Q3

REPORT INFORMATION
  Report Type: 
  Country: None (occurrence: None)
  Receive Date: 20110722
  Receipt Date: 20110718
  Transmission Date: 20111222
  Serious: No
  Sender: FDA-Public Use
  Company Number: US-PFIZER INC-2011164237

PATIENT
  Sex: Female

DRUGS (1)
  1. SERTRALINE HYDROCHLORIDE [Suspect]
     Dosage: 50 MG, UNK
     Dates: start: 20101001

REACTIONS (3)
  - AGITATION [None]
  - ABNORMAL BEHAVIOUR [None]
  - FOOD CRAVING [None]
